FAERS Safety Report 5331570-7 (Version None)
Quarter: 2007Q2

REPORT INFORMATION
  Report Type: 
  Country: None (occurrence: None)
  Receive Date: 20070522
  Receipt Date: 20070512
  Transmission Date: 20071010
  Serious: Yes (Disabling, Other)
  Sender: FDA-Public Use
  Company Number: US-PFIZER INC-2007034214

PATIENT
  Sex: Male
  Weight: 79.8 kg

DRUGS (5)
  1. LIPITOR [Suspect]
     Indication: HYPERCHOLESTEROLAEMIA
     Dosage: DAILY DOSE:10MG
     Route: 048
  2. LIPITOR [Suspect]
     Indication: BLOOD CHOLESTEROL INCREASED
  3. ZETIA [Suspect]
  4. NORVASC [Concomitant]
     Dosage: DAILY DOSE:5MG-TEXT:DAILY
  5. METOPROLOL SUCCINATE [Concomitant]
     Dosage: DAILY DOSE:50MG-TEXT:DAILY

REACTIONS (14)
  - AMYOTROPHIC LATERAL SCLEROSIS [None]
  - ASTHENIA [None]
  - BLOOD CREATINE PHOSPHOKINASE INCREASED [None]
  - DISABILITY [None]
  - DYSPNOEA [None]
  - FACIAL PARESIS [None]
  - FEAR [None]
  - HYPERPHAGIA [None]
  - JOINT RANGE OF MOTION DECREASED [None]
  - MUSCLE ATROPHY [None]
  - MYALGIA [None]
  - PAIN IN EXTREMITY [None]
  - RED BLOOD CELL SEDIMENTATION RATE INCREASED [None]
  - WEIGHT DECREASED [None]
